FAERS Safety Report 6340328-1 (Version None)
Quarter: 2009Q3

REPORT INFORMATION
  Report Type: 
  Country: None (occurrence: None)
  Receive Date: 20090904
  Receipt Date: 20090827
  Transmission Date: 20100115
  Serious: Yes (Hospitalization)
  Sender: FDA-Public Use
  Company Number: US-BIOGENIDEC-2008BI032198

PATIENT
  Age: 73 Year
  Sex: Female

DRUGS (2)
  1. TYSABRI [Suspect]
     Indication: MULTIPLE SCLEROSIS
     Route: 042
     Dates: start: 20070109, end: 20081008
  2. AVONEX [Concomitant]
     Indication: MULTIPLE SCLEROSIS
     Dates: start: 20000101

REACTIONS (3)
  - FALL [None]
  - LOWER LIMB FRACTURE [None]
  - UPPER LIMB FRACTURE [None]
